FAERS Safety Report 15719585 (Version 6)
Quarter: 2020Q1

REPORT INFORMATION
  Report Type: Report from Study
  Country: None (occurrence: DE)
  Receive Date: 20181213
  Receipt Date: 20200121
  Transmission Date: 20200409
  Serious: Yes (Hospitalization, Other)
  Sender: FDA-Public Use
  Company Number: DE-ABBVIE-18K-062-2589191-00

PATIENT
  Age: 80 Year
  Sex: Female
  Weight: 93 kg

DRUGS (1)
  1. HUMIRA [Suspect]
     Active Substance: ADALIMUMAB
     Indication: PRODUCT USED FOR UNKNOWN INDICATION
     Route: 058

REACTIONS (6)
  - Ocular hypertension [Recovered/Resolved]
  - Glaucoma [Recovered/Resolved]
  - Vitreous prolapse [Unknown]
  - Optical coherence tomography abnormal [Recovered/Resolved]
  - Intraocular pressure increased [Recovered/Resolved]
  - Aqueous humour leakage [Unknown]

NARRATIVE: CASE EVENT DATE: 20181211
